FAERS Safety Report 7421136-7 (Version None)
Quarter: 2011Q2

REPORT INFORMATION
  Report Type: 
  Country: None (occurrence: None)
  Receive Date: 20110418
  Receipt Date: 20110415
  Transmission Date: 20111010
  Serious: Yes (Death, Hospitalization, Other)
  Sender: FDA-Public Use
  Company Number: DE-GENZYME-RENA-1001045

PATIENT
  Sex: Female
  Weight: 55 kg

DRUGS (10)
  1. RENAGEL [Suspect]
     Indication: HYPERPHOSPHATAEMIA
     Dosage: 0.8 G, TID
     Route: 048
     Dates: start: 20090708, end: 20091201
  2. ALFACALCIDOL [Concomitant]
     Indication: PRODUCT USED FOR UNKNOWN INDICATION
     Dosage: UNK
     Route: 042
  3. COLECALCIFEROL [Concomitant]
     Indication: PRODUCT USED FOR UNKNOWN INDICATION
     Route: 065
  4. ACE INHIBITOR NOS [Concomitant]
     Indication: PRODUCT USED FOR UNKNOWN INDICATION
  5. RENAGEL [Suspect]
     Dosage: 4.8 G, QD
     Route: 048
     Dates: start: 20091201, end: 20100501
  6. IRON SUBSTITUION [Concomitant]
  7. EPOGEN [Concomitant]
     Indication: PRODUCT USED FOR UNKNOWN INDICATION
  8. DIURETICS [Concomitant]
     Indication: PRODUCT USED FOR UNKNOWN INDICATION
  9. BETA BLOCKING AGENTS [Concomitant]
     Indication: PRODUCT USED FOR UNKNOWN INDICATION
  10. CALCIUM ANTAGONIST NOS [Concomitant]
     Indication: PRODUCT USED FOR UNKNOWN INDICATION

REACTIONS (11)
  - INTERMITTENT CLAUDICATION [None]
  - COMPARTMENT SYNDROME [None]
  - FEMORAL ARTERY OCCLUSION [None]
  - DRY GANGRENE [None]
  - GANGRENE [None]
  - CORONARY ARTERY OCCLUSION [None]
  - COELIAC ARTERY OCCLUSION [None]
  - SEPTIC SHOCK [None]
  - SMALL INTESTINE GANGRENE [None]
  - STENOTROPHOMONAS SEPSIS [None]
  - POST PROCEDURAL INFECTION [None]
